FAERS Safety Report 23631522 (Version 1)
Quarter: 2024Q1

REPORT INFORMATION
  Report Type: Spontaneous
  Country: US (occurrence: US)
  Receive Date: 20240314
  Receipt Date: 20240314
  Transmission Date: 20240409
  Serious: Yes (Other)
  Sender: FDA-Public Use
  Company Number: US-PFIZER INC-202400063317

PATIENT
  Age: 69 Year
  Sex: Female

DRUGS (3)
  1. XELJANZ [Suspect]
     Active Substance: TOFACITINIB CITRATE
     Dosage: 5 MG/KG, 2X/DAY (1 TABLET ORALLY TWICE A DAY)
     Route: 048
  2. METHOTREXATE [Suspect]
     Active Substance: METHOTREXATE
     Indication: Pain in extremity
     Dosage: 2.5 MG
  3. METHOTREXATE [Suspect]
     Active Substance: METHOTREXATE
     Dosage: 5 DF, WEEKLY (5 PILLS ONCE A WEEK)

REACTIONS (20)
  - Optic neuritis [Unknown]
  - Neuropathy peripheral [Not Recovered/Not Resolved]
  - Joint swelling [Unknown]
  - Peripheral swelling [Recovered/Resolved]
  - Pain in extremity [Unknown]
  - Back pain [Not Recovered/Not Resolved]
  - Arthralgia [Not Recovered/Not Resolved]
  - Sleep disorder due to a general medical condition [Unknown]
  - Musculoskeletal stiffness [Unknown]
  - Foot deformity [Unknown]
  - Nodule [Unknown]
  - Dry eye [Unknown]
  - Eye inflammation [Unknown]
  - Arthritis [Not Recovered/Not Resolved]
  - Neuralgia [Unknown]
  - Neck pain [Unknown]
  - Plantar fasciitis [Not Recovered/Not Resolved]
  - Pain [Not Recovered/Not Resolved]
  - Exostosis [Unknown]
  - Periarthritis [Unknown]

NARRATIVE: CASE EVENT DATE: 20211123
